FAERS Safety Report 8907201 (Version 1)
Quarter: 2012Q4

REPORT INFORMATION
  Report Type: 
  Country: CA (occurrence: CA)
  Receive Date: 20121114
  Receipt Date: 20121114
  Transmission Date: 20130627
  Serious: Yes (Hospitalization, Other)
  Sender: FDA-Public Use
  Company Number: PHBS2001CA03699

PATIENT
  Age: 79 Year
  Sex: Female

DRUGS (5)
  1. EXELON [Suspect]
     Route: 048
     Dates: start: 19980331, end: 19990408
  2. EXELON [Suspect]
     Dosage: 6 mg, BID
     Route: 048
     Dates: start: 19990409
  3. GLUCOPHAG [Concomitant]
     Dosage: 500 mg, TID
     Route: 048
  4. LOPRESSOR [Concomitant]
     Dosage: 50 mg, BID
     Route: 048
  5. ZANTAC [Concomitant]
     Dosage: 150 mg, BID
     Route: 048

REACTIONS (6)
  - Cerebrovascular accident [Recovering/Resolving]
  - Hemiparesis [Recovering/Resolving]
  - Aortic arteriosclerosis [Unknown]
  - Decreased appetite [Not Recovered/Not Resolved]
  - Nausea [Not Recovered/Not Resolved]
  - Confusional state [Unknown]
